FAERS Safety Report 8444771-6 (Version None)
Quarter: 2012Q2

REPORT INFORMATION
  Report Type: 
  Country: None (occurrence: None)
  Receive Date: 20120323
  Receipt Date: 20110818
  Transmission Date: 20120825
  Serious: Yes (Hospitalization, Other)
  Sender: FDA-Public Use
  Company Number: 163-21880-11082301

PATIENT
  Age: 63 Year
  Sex: Male

DRUGS (11)
  1. LIPITOR [Concomitant]
  2. COZAAR [Concomitant]
  3. LASIX [Concomitant]
  4. REVLIMID [Suspect]
     Indication: MULTIPLE MYELOMA
     Dosage: 15 MG, 1 IN 1 D, PO, 10 MG, 1 IN 1 D, PO, 5 MG, QD X 21 DAYS, PO
     Route: 048
     Dates: start: 20081101, end: 20090101
  5. REVLIMID [Suspect]
     Indication: MULTIPLE MYELOMA
     Dosage: 15 MG, 1 IN 1 D, PO, 10 MG, 1 IN 1 D, PO, 5 MG, QD X 21 DAYS, PO
     Route: 048
     Dates: start: 20090601, end: 20100101
  6. REVLIMID [Suspect]
     Indication: MULTIPLE MYELOMA
     Dosage: 15 MG, 1 IN 1 D, PO, 10 MG, 1 IN 1 D, PO, 5 MG, QD X 21 DAYS, PO
     Route: 048
     Dates: start: 20101101, end: 20110804
  7. URSODIOL [Concomitant]
  8. DECADRON [Concomitant]
  9. PRILOSEC [Concomitant]
  10. COUMADIN [Concomitant]
  11. SPIROLAC (SPIRONOLACTONE) [Concomitant]

REACTIONS (1)
  - CELLULITIS [None]
